FAERS Safety Report 6651521-2 (Version None)
Quarter: 2010Q1

REPORT INFORMATION
  Report Type: 
  Country: None (occurrence: None)
  Receive Date: 20100325
  Receipt Date: 20100316
  Transmission Date: 20100710
  Serious: Yes (Hospitalization)
  Sender: FDA-Public Use
  Company Number: A0799512A

PATIENT
  Age: 51 Year
  Sex: Male
  Weight: 93.2 kg

DRUGS (10)
  1. AVANDIA [Suspect]
     Indication: DIABETES MELLITUS
     Dosage: 8MG PER DAY
     Route: 048
     Dates: end: 20070615
  2. INSULIN [Concomitant]
  3. LIPITOR [Concomitant]
  4. MAVIK [Concomitant]
  5. OMACOR [Concomitant]
  6. ASPIRIN [Concomitant]
  7. STARLIX [Concomitant]
  8. VASOTEC [Concomitant]
  9. TOPROL-XL [Concomitant]
  10. GLUCOPHAGE [Concomitant]

REACTIONS (3)
  - CORONARY ARTERY DISEASE [None]
  - ISCHAEMIC CARDIOMYOPATHY [None]
  - MYOCARDIAL INFARCTION [None]
